FAERS Safety Report 7740036-6 (Version None)
Quarter: 2011Q3

REPORT INFORMATION
  Report Type: 
  Country: None (occurrence: None)
  Receive Date: 20110909
  Receipt Date: 20110907
  Transmission Date: 20111222
  Serious: Yes (Other)
  Sender: FDA-Public Use
  Company Number: CO-PFIZER INC-2011210824

PATIENT
  Age: 48 Year
  Sex: Female

DRUGS (1)
  1. PHENYTOIN SODIUM CAP [Suspect]
     Indication: CONVULSION
     Dosage: 100 MG, UNK
     Route: 048
     Dates: start: 20060101

REACTIONS (2)
  - MENINGIOMA [None]
  - PAIN IN EXTREMITY [None]
